FAERS Safety Report 12628057 (Version 3)
Quarter: 2016Q3

REPORT INFORMATION
  Report Type: Report from Study
  Country: US (occurrence: US)
  Receive Date: 20160808
  Receipt Date: 20160826
  Transmission Date: 20161109
  Serious: Yes (Other)
  Sender: FDA-Public Use
  Company Number: US-ROCHE-1808245

PATIENT
  Age: 13 Year
  Sex: Male
  Weight: 42.1 kg

DRUGS (12)
  1. NUTROPIN AQ [Suspect]
     Active Substance: SOMATROPIN
     Route: 058
  2. PROAIR HFA [Concomitant]
     Active Substance: ALBUTEROL SULFATE
     Dosage: 2 PUFFS OF INHALATION EVERY 4 HOURS AS NEEDED
     Route: 065
  3. CETIRIZINE [Concomitant]
     Active Substance: CETIRIZINE HYDROCHLORIDE
     Route: 065
  4. FISH OIL [Concomitant]
     Active Substance: FISH OIL
     Dosage: 1 EACH DAY
     Route: 048
  5. NUTROPIN AQ [Suspect]
     Active Substance: SOMATROPIN
     Route: 058
     Dates: start: 20151013
  6. NUTROPIN AQ [Suspect]
     Active Substance: SOMATROPIN
     Dosage: 6 DAYS A WEEK, WITH SUNDAY OFF
     Route: 058
  7. NUTROPIN AQ [Suspect]
     Active Substance: SOMATROPIN
     Dosage: ONGOING
     Route: 058
     Dates: start: 201510
  8. NUTROPIN AQ [Suspect]
     Active Substance: SOMATROPIN
     Dosage: ONGOING
     Route: 058
     Dates: start: 201507, end: 20150812
  9. NUTROPIN AQ [Suspect]
     Active Substance: SOMATROPIN
     Indication: BLOOD GROWTH HORMONE
     Route: 058
     Dates: start: 20150724, end: 201507
  10. ADVIL [Concomitant]
     Active Substance: IBUPROFEN
     Indication: PAIN
     Dosage: 10 MG/KG EVERY 6 HRS AS NEEDED?DOSE: 100MG/5 ML
     Route: 065
  11. NUTROPIN AQ [Suspect]
     Active Substance: SOMATROPIN
     Route: 058
  12. MOTRIN [Concomitant]
     Active Substance: IBUPROFEN
     Indication: PAIN
     Dosage: DOSE: 100MG/5 ML?10 MG/KG EVERY 6 HRS AS NEEDED
     Route: 065

REACTIONS (7)
  - Fatigue [Unknown]
  - Hepatic enzyme increased [Recovering/Resolving]
  - Rhabdomyolysis [Recovered/Resolved]
  - Headache [Unknown]
  - Chromaturia [Recovered/Resolved]
  - Myalgia [Recovered/Resolved]
  - Pain in extremity [Recovering/Resolving]

NARRATIVE: CASE EVENT DATE: 201507
